FAERS Safety Report 22344275 (Version 1)
Quarter: 2023Q2

REPORT INFORMATION
  Report Type: Other
  Country: US (occurrence: None)
  Receive Date: 20230519
  Receipt Date: 20230519
  Transmission Date: 20230721
  Serious: Yes (Other)
  Sender: FDA-Public Use
  Company Number: US-ROCHE-3350963

PATIENT
  Age: 72 Year
  Sex: Female
  Weight: 38.2 kg

DRUGS (6)
  1. BEVACIZUMAB [Suspect]
     Active Substance: BEVACIZUMAB
     Indication: Colon cancer metastatic
     Dosage: 0.357 MILLIGRAM(S)/KILOGRAM (5 MILLIGRAM(S)/KILOGRAM, 1 IN 2 WEEK)
     Route: 065
     Dates: start: 20230418
  2. BEVACIZUMAB [Suspect]
     Active Substance: BEVACIZUMAB
     Dosage: 0.357 MILLIGRAM(S)/KILOGRAM (5 MILLIGRAM(S)/KILOGRAM, 1 IN 2 WEEK)
     Route: 065
     Dates: end: 20230404
  3. LONSURF [Suspect]
     Active Substance: TIPIRACIL HYDROCHLORIDE\TRIFLURIDINE
     Indication: Rectosigmoid cancer
     Dosage: 3.75 MILLIGRAM(S) (45 MILLIGRAM(S), 1 IN 12 DAY)
     Route: 048
     Dates: start: 20220401, end: 20230403
  4. LONSURF [Suspect]
     Active Substance: TIPIRACIL HYDROCHLORIDE\TRIFLURIDINE
     Indication: Colon cancer metastatic
     Dosage: 80.0 MILLIGRAM(S) (40 MILLIGRAM(S), 1 IN 12 HOUR)
     Route: 048
     Dates: start: 20230418
  5. SENOKOT [Concomitant]
     Active Substance: SENNOSIDES
     Route: 048
     Dates: start: 20220419
  6. MIRALAX [Concomitant]
     Active Substance: POLYETHYLENE GLYCOL 3350
     Route: 048
     Dates: start: 20220419

REACTIONS (4)
  - Pancytopenia [Recovering/Resolving]
  - Anaemia [Recovering/Resolving]
  - Productive cough [Unknown]
  - Excessive cerumen production [Unknown]
